FAERS Safety Report 7164088-X (Version None)
Quarter: 2010Q4

REPORT INFORMATION
  Report Type: 
  Country: None (occurrence: None)
  Receive Date: 20101215
  Receipt Date: 20101202
  Transmission Date: 20110411
  Serious: Yes (Hospitalization, Other)
  Sender: FDA-Public Use
  Company Number: PHHY2010AU79412

PATIENT
  Sex: Female

DRUGS (2)
  1. CLOZARIL [Suspect]
     Dosage: 275 MG
     Route: 048
     Dates: start: 20031006
  2. CLOPINE [Concomitant]

REACTIONS (4)
  - LOSS OF CONSCIOUSNESS [None]
  - NEUTROPHIL COUNT INCREASED [None]
  - PANCREATITIS ACUTE [None]
  - WHITE BLOOD CELL COUNT INCREASED [None]
